FAERS Safety Report 9773209 (Version 2)
Quarter: 2013Q4

REPORT INFORMATION
  Report Type: Other
  Country: PL (occurrence: PL)
  Receive Date: 20131219
  Receipt Date: 20131219
  Transmission Date: 20140711
  Serious: Yes (Death)
  Sender: FDA-Public Use
  Company Number: PL-NAPPMUNDI-DEU-2013-0012714

PATIENT
  Age: 58 Year
  Sex: Male

DRUGS (2)
  1. MORPHINE SULFATE [Suspect]
     Indication: CANCER PAIN
     Dosage: UNK
     Dates: start: 2009, end: 2009
  2. BENZODIAZEPINE DERIVATIVES [Suspect]
     Indication: TERMINAL STATE
     Dosage: UNK
     Dates: start: 2009, end: 2009

REACTIONS (1)
  - Accidental exposure to product [Fatal]
